FAERS Safety Report 9748871 (Version 2)
Quarter: 2014Q1

REPORT INFORMATION
  Report Type: Spontaneous
  Country: US (occurrence: US)
  Receive Date: 20131212
  Receipt Date: 20140312
  Transmission Date: 20141002
  Serious: No
  Sender: FDA-Public Use
  Company Number: US-INCYTE CORPORATION-2013IN002092

PATIENT
  Age: 83 Year
  Sex: Female
  Weight: 68.48 kg

DRUGS (4)
  1. JAKAFI [Suspect]
     Indication: POLYCYTHAEMIA VERA
     Dosage: 10 MG, 1 DF QOD; ALTERNATE WITH 2 DF QOD
     Route: 048
     Dates: start: 20130215, end: 20131204
  2. JAKAFI [Suspect]
     Indication: MYELOPROLIFERATIVE DISORDER
  3. ASA [Concomitant]
     Dosage: 81 MG, UNK
  4. CALTRATE +VIT.D [Concomitant]

REACTIONS (3)
  - Hypoaesthesia [Not Recovered/Not Resolved]
  - Peripheral coldness [Not Recovered/Not Resolved]
  - Haemoglobin decreased [Recovering/Resolving]
